FAERS Safety Report 4371666-X (Version None)
Quarter: 2004Q2

REPORT INFORMATION
  Report Type: 
  Country: None (occurrence: None)
  Receive Date: 20040603
  Receipt Date: 20040603
  Transmission Date: 20050107
  Serious: No
  Sender: FDA-Public Use
  Company Number: None

PATIENT
  Age: 55 Year
  Sex: Male

DRUGS (1)
  1. PROPOFOL [Suspect]

REACTIONS (3)
  - DEVICE FAILURE [None]
  - MEDICATION ERROR [None]
  - OVERDOSE [None]
